FAERS Safety Report 9028614 (Version 3)
Quarter: 2014Q2

REPORT INFORMATION
  Report Type: Spontaneous
  Country: US (occurrence: US)
  Receive Date: 20130124
  Receipt Date: 20140506
  Transmission Date: 20141212
  Serious: Yes (Other)
  Sender: FDA-Public Use
  Company Number: US-ASTRAZENECA-2012SE82466

PATIENT
  Age: 57 Year
  Sex: Female
  Weight: 78 kg

DRUGS (17)
  1. NEXIUM [Suspect]
     Indication: DYSPEPSIA
     Route: 048
     Dates: start: 2009, end: 20140423
  2. OTHER MEDICATIONS [Suspect]
     Indication: DYSPEPSIA
     Route: 065
  3. FAMOTIDINE [Concomitant]
     Indication: DYSPEPSIA
     Route: 048
     Dates: start: 2009
  4. QUINAPRIL [Concomitant]
     Indication: HYPERTENSION
     Route: 048
     Dates: start: 2009
  5. ADVAIR DISKUS [Concomitant]
     Indication: ASTHMA
     Route: 055
  6. ADVAIR DISKUS [Concomitant]
     Indication: ASTHMA
     Dosage: 250/50 MG UNK
     Route: 055
     Dates: start: 2009
  7. VENTOLIN HFA [Concomitant]
     Indication: ASTHMA
     Route: 055
  8. BENADRYL OTC [Concomitant]
     Indication: PRURITUS
     Dosage: UNKNOWN PRN
     Dates: start: 20140404
  9. LEVOTHYROXINE-SODI [Concomitant]
     Indication: THYROID DISORDER
     Dates: start: 2009
  10. LESCOL XL [Concomitant]
     Indication: BLOOD CHOLESTEROL ABNORMAL
     Dates: start: 2009
  11. NASONEX [Concomitant]
     Indication: NASAL DECONGESTION THERAPY
     Dosage: 50MCG-IN 2 SPRAYS DAILY
     Dates: start: 2009
  12. PROVENTIL-HAS [Concomitant]
     Indication: ASTHMA
     Dosage: 90MCG-IN 2 PUFFS QID
     Dates: start: 2009
  13. CROMOLYN [Concomitant]
     Dosage: 4MG 1 DROP IN EYES TID/PRN
  14. ALBUTEROL-SULFATE [Concomitant]
     Indication: ASTHMA
     Dosage: 0.083% QID/PRN
     Dates: start: 2009
  15. DIPHENOXYLATE [Concomitant]
     Indication: DIARRHOEA
     Dosage: 2.5-0.02MG, 1-2 TAB Q6H/PRN
  16. ASPIRIN [Concomitant]
     Indication: PAIN IN EXTREMITY
  17. TYLENOL [Concomitant]
     Indication: PAIN IN EXTREMITY
     Dosage: UNKNOWN PRN

REACTIONS (10)
  - Suicidal ideation [Unknown]
  - Sinus disorder [Unknown]
  - Thyroid disorder [Unknown]
  - Influenza [Unknown]
  - Hypoaesthesia [Not Recovered/Not Resolved]
  - Abdominal pain [Unknown]
  - Depression [Unknown]
  - Malaise [Unknown]
  - Rash [Recovering/Resolving]
  - Drug dose omission [Unknown]
